FAERS Safety Report 23872468 (Version 1)
Quarter: 2024Q2

REPORT INFORMATION
  Report Type: Spontaneous
  Country: US (occurrence: US)
  Receive Date: 20240520
  Receipt Date: 20240520
  Transmission Date: 20240716
  Serious: Yes (Other)
  Sender: FDA-Public Use
  Company Number: US-ORGANON-O2303USA001955

PATIENT
  Sex: Female

DRUGS (1)
  1. NEXPLANON [Suspect]
     Active Substance: ETONOGESTREL
     Dosage: 1 IMPLANT (RIGHT ARM)
     Route: 059
     Dates: start: 20221102

REACTIONS (6)
  - Pregnancy with implant contraceptive [Recovered/Resolved]
  - Abortion induced [Recovered/Resolved]
  - Device expulsion [Unknown]
  - Unintended pregnancy [Recovered/Resolved]
  - Complication associated with device [Unknown]
  - Product dose omission issue [Unknown]

NARRATIVE: CASE EVENT DATE: 20230101
